FAERS Safety Report 4272814-2 (Version None)
Quarter: 2004Q1

REPORT INFORMATION
  Report Type: 
  Country: None (occurrence: None)
  Receive Date: 20040114
  Receipt Date: 20040112
  Transmission Date: 20041129
  Serious: Yes (Hospitalization)
  Sender: FDA-Public Use
  Company Number: 2003187761US

PATIENT
  Age: 78 Year
  Sex: Male
  Weight: 64 kg

DRUGS (7)
  1. CAMPTOSAR [Suspect]
     Indication: PANCREATIC CARCINOMA
     Dosage: 45 MG/M2, WEEKLY, IV
     Route: 042
     Dates: start: 20031007, end: 20031118
  2. COMPARATOR-DOCETAXEL (DOCETAXEL) INJECTION [Suspect]
     Indication: PANCREATIC CARCINOMA
     Dosage: 30 MG/M2, WEEKLY, IV
     Route: 042
     Dates: start: 20031007, end: 20031118
  3. CELEXA [Concomitant]
  4. ZOCOR [Concomitant]
  5. FENTANYL [Concomitant]
  6. OXYCODONE HCL [Concomitant]
  7. PREVACID [Concomitant]

REACTIONS (16)
  - ABDOMINAL PAIN [None]
  - BLOOD BICARBONATE INCREASED [None]
  - BLOOD POTASSIUM DECREASED [None]
  - BLOOD UREA DECREASED [None]
  - CONDITION AGGRAVATED [None]
  - DIARRHOEA [None]
  - HAEMATOCRIT DECREASED [None]
  - HAEMOGLOBIN DECREASED [None]
  - HYPONATRAEMIA [None]
  - MARKEDLY REDUCED DIETARY INTAKE [None]
  - MONOCYTE COUNT INCREASED [None]
  - NAUSEA [None]
  - NEUTROPENIA [None]
  - RED BLOOD CELL COUNT DECREASED [None]
  - VOMITING [None]
  - WHITE BLOOD CELL COUNT DECREASED [None]
